FAERS Safety Report 5305475-1 (Version None)
Quarter: 2007Q2

REPORT INFORMATION
  Report Type: 
  Country: None (occurrence: None)
  Receive Date: 20070424
  Receipt Date: 20060425
  Transmission Date: 20071010
  Serious: No
  Sender: FDA-Public Use
  Company Number: US-GLAXOSMITHKLINE-A0603233A

PATIENT
  Sex: Female

DRUGS (1)
  1. SEREVENT [Suspect]

REACTIONS (2)
  - DYSPNOEA [None]
  - HYPERSENSITIVITY [None]
